FAERS Safety Report 12968382 (Version 1)
Quarter: 2016Q4

REPORT INFORMATION
  Report Type: Spontaneous
  Country: US (occurrence: US)
  Receive Date: 20161121
  Receipt Date: 20161121
  Transmission Date: 20170207
  Serious: No
  Sender: FDA-Public Use
  Company Number: None

PATIENT
  Sex: Female

DRUGS (2)
  1. VIEKIRA PAK [Suspect]
     Active Substance: DASABUVIR\OMBITASVIR\PARITAPREVIR\RITONAVIR
     Indication: HEPATITIS VIRAL
     Route: 048
     Dates: start: 20160909
  2. RIBAVIRIN 200MG TEVA USA? [Suspect]
     Active Substance: RIBAVIRIN
     Indication: HEPATITIS VIRAL
     Route: 048
     Dates: start: 20160909

REACTIONS (6)
  - Fungal infection [None]
  - Headache [None]
  - Uterine disorder [None]
  - Cyst [None]
  - Asthenia [None]
  - Fatigue [None]
